FAERS Safety Report 17688773 (Version 1)
Quarter: 2020Q2

REPORT INFORMATION
  Report Type: Spontaneous
  Country: AU (occurrence: AU)
  Receive Date: 20200421
  Receipt Date: 20200421
  Transmission Date: 20200714
  Serious: Yes (Other)
  Sender: FDA-Public Use
  Company Number: NVSC2020AU040853

PATIENT
  Age: 39 Year
  Sex: Male

DRUGS (1)
  1. EVEROLIMUS. [Suspect]
     Active Substance: EVEROLIMUS
     Indication: HODGKIN^S DISEASE REFRACTORY
     Dosage: 10 MG
     Route: 048
     Dates: start: 20191019, end: 20200220

REACTIONS (3)
  - Malignant neoplasm progression [Unknown]
  - Hodgkin^s disease refractory [Unknown]
  - Therapy partial responder [Unknown]

NARRATIVE: CASE EVENT DATE: 20200219
